FAERS Safety Report 6687968-8 (Version None)
Quarter: 2010Q2

REPORT INFORMATION
  Report Type: 
  Country: None (occurrence: None)
  Receive Date: 20100420
  Receipt Date: 20100416
  Transmission Date: 20101027
  Serious: Yes (Other)
  Sender: FDA-Public Use
  Company Number: US-ROXANE LABORATORIES, INC.-2010-RO-00432RO

PATIENT
  Age: 16 Year
  Sex: Male
  Weight: 78 kg

DRUGS (14)
  1. MORPHINE [Suspect]
     Indication: PROCEDURAL PAIN
     Route: 042
  2. MORPHINE [Suspect]
     Route: 042
  3. MORPHINE [Suspect]
     Route: 042
  4. FENTANYL [Suspect]
     Indication: POSTOPERATIVE ANALGESIA
  5. FENTANYL [Suspect]
     Indication: PROCEDURAL PAIN
  6. OXYCODONE [Suspect]
     Indication: ANALGESIC THERAPY
     Route: 048
  7. OXYCODONE [Suspect]
     Route: 048
  8. ACETAMINOPHEN [Suspect]
     Indication: ANALGESIC THERAPY
     Route: 048
  9. REMIFENTANIL [Suspect]
     Indication: ANAESTHESIA
  10. PROPOFOL [Suspect]
     Indication: ANAESTHESIA
     Route: 042
  11. PROPOFOL [Suspect]
     Route: 042
  12. ROCURONIUM BROMIDE [Suspect]
     Indication: ANAESTHESIA
  13. BUPIVACAINE HCL [Suspect]
  14. DESFLURANE [Suspect]
     Indication: ANAESTHESIA

REACTIONS (1)
  - DRUG TOLERANCE [None]
